FAERS Safety Report 13355074 (Version 1)
Quarter: 2017Q1

REPORT INFORMATION
  Report Type: Spontaneous
  Country: US (occurrence: US)
  Receive Date: 20170321
  Receipt Date: 20170321
  Transmission Date: 20170429
  Serious: No
  Sender: FDA-Public Use
  Company Number: US-BAUSCH-BL-2016-032330

PATIENT
  Age: 57 Year
  Sex: Female
  Weight: 63.56 kg

DRUGS (1)
  1. NEOMYCIN AND POLYMYXIN B SULFATES AND GRAMICIDIN [Suspect]
     Active Substance: GRAMICIDIN\NEOMYCIN SULFATE\POLYMYXIN B SULFATE
     Indication: PRODUCT USED FOR UNKNOWN INDICATION
     Dosage: IN BOTH EYES
     Route: 047
     Dates: start: 20161222

REACTIONS (6)
  - Eye pain [Unknown]
  - Dry eye [Unknown]
  - Foreign body sensation in eyes [Not Recovered/Not Resolved]
  - Wrong drug administered [Unknown]
  - Eye pruritus [Unknown]
  - Visual impairment [Unknown]

NARRATIVE: CASE EVENT DATE: 20161222
